FAERS Safety Report 10765837 (Version 1)
Quarter: 2015Q1

REPORT INFORMATION
  Report Type: Spontaneous
  Country: US (occurrence: US)
  Receive Date: 20150205
  Receipt Date: 20150205
  Transmission Date: 20150721
  Serious: Yes (Death)
  Sender: FDA-Public Use
  Company Number: US-PERRIGO-15US001261

PATIENT
  Age: 27 Year
  Sex: Male

DRUGS (2)
  1. COCAINE [Suspect]
     Active Substance: COCAINE
     Indication: DRUG ABUSE
     Dosage: UNKNOWN,UNKNOWN
     Route: 065
  2. MORPHINE SULFATE 20 MG/ML 0L8 [Suspect]
     Active Substance: MORPHINE SULFATE
     Indication: DRUG ABUSE
     Route: 065

REACTIONS (1)
  - Death [Fatal]
